FAERS Safety Report 15555673 (Version 2)
Quarter: 2018Q4

REPORT INFORMATION
  Report Type: Spontaneous
  Country: FI (occurrence: FI)
  Receive Date: 20181026
  Receipt Date: 20181115
  Transmission Date: 20190205
  Serious: Yes (Other)
  Sender: FDA-Public Use
  Company Number: FI-AMGEN-FINSP2018149262

PATIENT
  Sex: Female

DRUGS (1)
  1. PROLIA [Suspect]
     Active Substance: DENOSUMAB
     Indication: OSTEOPOROSIS POSTMENOPAUSAL
     Dosage: UNK
     Route: 065
     Dates: start: 2013, end: 20150108

REACTIONS (5)
  - Dental restoration failure [Unknown]
  - Glaucoma [Unknown]
  - Cataract [Unknown]
  - Toothache [Unknown]
  - Pruritus [Unknown]

NARRATIVE: CASE EVENT DATE: 2018
